FAERS Safety Report 21930689 (Version 1)
Quarter: 2023Q1

REPORT INFORMATION
  Report Type: Other
  Country: None (occurrence: TN)
  Receive Date: 20230131
  Receipt Date: 20230131
  Transmission Date: 20230417
  Serious: Yes (Hospitalization, Other)
  Sender: FDA-Public Use
  Company Number: TN-Innogenix, LLC-2137288

PATIENT
  Age: 27 Year

DRUGS (3)
  1. HALOPERIDOL [Suspect]
     Active Substance: HALOPERIDOL
     Indication: Schizophrenia
     Route: 065
  2. CHLORPROMAZINE [Suspect]
     Active Substance: CHLORPROMAZINE
     Route: 065
  3. BIPERIDEN [Concomitant]
     Active Substance: BIPERIDEN
     Route: 065

REACTIONS (1)
  - Colitis ischaemic [Unknown]
